FAERS Safety Report 7543556-2 (Version None)
Quarter: 2011Q2

REPORT INFORMATION
  Report Type: 
  Country: None (occurrence: None)
  Receive Date: 20110613
  Receipt Date: 20020715
  Transmission Date: 20111010
  Serious: Yes (Other)
  Sender: FDA-Public Use
  Company Number: PHHO2002CA10868

PATIENT
  Sex: Female

DRUGS (1)
  1. CALCITONIN SALMON [Suspect]
     Dates: start: 20010101, end: 20030601

REACTIONS (2)
  - ROAD TRAFFIC ACCIDENT [None]
  - RIB FRACTURE [None]
